FAERS Safety Report 12140192 (Version 1)
Quarter: 2016Q1

REPORT INFORMATION
  Report Type: Spontaneous
  Country: None (occurrence: None)
  Receive Date: 20160302
  Receipt Date: 20160302
  Transmission Date: 20160526
  Serious: Yes (Disabling)
  Sender: FDA-Public Use
  Company Number: None

PATIENT
  Age: 40 Year
  Sex: Male
  Weight: 72.58 kg

DRUGS (1)
  1. CIPROFLOXACIN. [Suspect]
     Active Substance: CIPROFLOXACIN
     Indication: PROSTATE INFECTION
     Dosage: 500 MG  TWICE PER DAY
     Route: 048
     Dates: start: 20130408, end: 20130409

REACTIONS (11)
  - Paraesthesia [None]
  - Meniscus injury [None]
  - Plantar fasciitis [None]
  - Muscle twitching [None]
  - Musculoskeletal pain [None]
  - Tendon pain [None]
  - Joint stiffness [None]
  - Gait disturbance [None]
  - Arthralgia [None]
  - Pain in extremity [None]
  - Cartilage injury [None]
